FAERS Safety Report 5162716-1 (Version None)
Quarter: 2006Q4

REPORT INFORMATION
  Report Type: 
  Country: None (occurrence: None)
  Receive Date: 20061201
  Receipt Date: 20060502
  Transmission Date: 20070319
  Serious: No
  Sender: FDA-Public Use
  Company Number: US-GLAXOSMITHKLINE-A0604091A

PATIENT
  Age: 7 Month
  Sex: Male
  Weight: 7.7 kg

DRUGS (1)
  1. AUGMENTIN '125' [Suspect]
     Indication: EAR INFECTION
     Dosage: 1TSP TWICE PER DAY
     Route: 048

REACTIONS (5)
  - ACCIDENTAL OVERDOSE [None]
  - ANOREXIA [None]
  - DRUG PRESCRIBING ERROR [None]
  - PSYCHOMOTOR HYPERACTIVITY [None]
  - VOMITING [None]
